FAERS Safety Report 7079901-4 (Version None)
Quarter: 2010Q4

REPORT INFORMATION
  Report Type: 
  Country: None (occurrence: None)
  Receive Date: 20101102
  Receipt Date: 20101025
  Transmission Date: 20110411
  Serious: Yes (Other)
  Sender: FDA-Public Use
  Company Number: JP-PFIZER INC-2010125589

PATIENT
  Age: 89 Year
  Sex: Male
  Weight: 63 kg

DRUGS (14)
  1. ZITHROMAX [Suspect]
     Indication: PERIODONTITIS
     Dosage: 500 MG, 1X/DAY
     Route: 048
     Dates: start: 20100924, end: 20100926
  2. ADALAT [Concomitant]
     Indication: ANGINA PECTORIS
     Dosage: 10 MG, 1X/DAY
     Route: 048
  3. FRANDOL [Concomitant]
     Indication: CORONARY ARTERY STENOSIS
     Dosage: 40 MG/DAY
     Route: 062
  4. VESICARE [Concomitant]
     Dosage: UNK
     Route: 048
  5. 8-HOUR BAYER [Concomitant]
     Indication: CORONARY ARTERY STENOSIS
     Dosage: 100 MG, 1X/DAY
     Route: 048
  6. PARIET [Concomitant]
     Indication: REFLUX OESOPHAGITIS
     Dosage: 10 MG, 1X/DAY
     Route: 048
  7. WARFARIN [Concomitant]
     Indication: CORONARY ARTERY STENOSIS
     Dosage: 2.5 MG, 1X/DAY
     Route: 048
  8. SALOBEL [Concomitant]
     Indication: GOUT
     Dosage: 100 MG, 1X/DAY
     Route: 048
  9. MAINTATE [Concomitant]
     Indication: ANGINA PECTORIS
     Dosage: 5 MG, 1X/DAY
     Route: 048
  10. TAMSULOSIN HCL [Concomitant]
     Indication: BENIGN PROSTATIC HYPERPLASIA
     Dosage: 0.2 MG, 1X/DAY
     Route: 048
  11. DIOVAN [Concomitant]
     Indication: HYPERTENSION
     Dosage: 40 MG, 2X/DAY
     Route: 048
  12. MUCOSOLVAN [Concomitant]
     Indication: BRONCHIECTASIS
     Dosage: 15 MG, 2X/DAY
     Route: 048
  13. NITROPEN [Concomitant]
     Indication: ANGINA PECTORIS
     Dosage: 0.3 MG/DAY
     Route: 048
  14. TOMIRON [Concomitant]
     Indication: PERIODONTAL DISEASE
     Dosage: 100 MG, 3X/DAY
     Route: 048
     Dates: start: 20100916, end: 20100919

REACTIONS (1)
  - BLOOD PRESSURE INCREASED [None]
